FAERS Safety Report 23039875 (Version 3)
Quarter: 2023Q4

REPORT INFORMATION
  Report Type: Report from Study
  Country: CA (occurrence: None)
  Receive Date: 20231006
  Receipt Date: 20231019
  Transmission Date: 20240109
  Serious: Yes (Death, Hospitalization)
  Sender: FDA-Public Use
  Company Number: 2023A214069

PATIENT
  Sex: Male

DRUGS (1)
  1. IMFINZI [Suspect]
     Active Substance: DURVALUMAB
     Indication: Hepatobiliary cancer
     Route: 042
     Dates: start: 20230829, end: 20231003

REACTIONS (2)
  - Pericardial effusion [Fatal]
  - Atrial fibrillation [Fatal]
